FAERS Safety Report 8836958 (Version 1)
Quarter: 2012Q4

REPORT INFORMATION
  Report Type: 
  Country: NL (occurrence: NL)
  Receive Date: 20121012
  Receipt Date: 20121012
  Transmission Date: 20130627
  Serious: Yes (Hospitalization)
  Sender: FDA-Public Use
  Company Number: NL-PFIZER INC-2012248826

PATIENT
  Sex: Female
  Weight: 86 kg

DRUGS (17)
  1. PROGESTERONE [Concomitant]
     Indication: BLOOD FOLLICLE STIMULATING HORMONE DECREASED
  2. PROGESTERONE [Concomitant]
     Indication: HYPOGONADISM FEMALE
  3. METOPROLOL [Concomitant]
     Indication: ESSENTIAL HYPERTENSION
     Dosage: UNK
     Dates: start: 19940615
  4. DILTIAZEM [Concomitant]
     Indication: ESSENTIAL HYPERTENSION
     Dosage: UNK
     Dates: start: 19950615
  5. LOSARTAN [Concomitant]
     Indication: ESSENTIAL HYPERTENSION
     Dosage: UNK
     Dates: start: 19970615
  6. LEVOTHYROXINE [Concomitant]
     Indication: BLOOD THYROID STIMULATING HORMONE DECREASED
     Dosage: UNK
     Dates: start: 19841115
  7. LIPITOR [Concomitant]
     Indication: HYPERTENSION
     Dosage: UNK
     Dates: start: 20021007
  8. CORTISONE ACETATE [Concomitant]
     Indication: BLOOD CORTICOTROPHIN DECREASED
     Dosage: UNK
     Dates: start: 19841115
  9. SYNAPAUSE E3 [Concomitant]
     Indication: BLOOD LUTEINISING HORMONE DECREASED
     Dosage: UNK
     Dates: start: 20040326
  10. SYNAPAUSE E3 [Concomitant]
     Indication: BLOOD FOLLICLE STIMULATING HORMONE DECREASED
  11. SYNAPAUSE E3 [Concomitant]
     Indication: HYPOGONADISM FEMALE
  12. LERDIP [Concomitant]
     Indication: HYPERTENSION
     Dosage: UNK
     Dates: start: 20040408
  13. GENOTROPIN [Suspect]
     Indication: HYPOPITUITARISM
     Dosage: 0.3 mg, 7/wk
     Route: 058
     Dates: start: 20030616
  14. OESTROGEN ^HOLZINGER^ [Concomitant]
     Indication: BLOOD LUTEINISING HORMONE DECREASED
     Dosage: UNK
     Dates: start: 19810615
  15. OESTROGEN ^HOLZINGER^ [Concomitant]
     Indication: BLOOD FOLLICLE STIMULATING HORMONE DECREASED
  16. OESTROGEN ^HOLZINGER^ [Concomitant]
     Indication: HYPOGONADISM FEMALE
  17. PROGESTERONE [Concomitant]
     Indication: BLOOD LUTEINISING HORMONE DECREASED
     Dosage: UNK
     Dates: start: 19810615

REACTIONS (1)
  - Cataract [Unknown]
